FAERS Safety Report 4732743-4 (Version None)
Quarter: 2005Q3

REPORT INFORMATION
  Report Type: 
  Country: None (occurrence: None)
  Receive Date: 20050803
  Receipt Date: 20050615
  Transmission Date: 20060218
  Serious: Yes (Hospitalization)
  Sender: FDA-Public Use
  Company Number: US-GLAXOSMITHKLINE-A0562909A

PATIENT
  Age: 86 Year
  Sex: Female
  Weight: 57.7 kg

DRUGS (1)
  1. LAMOTRIGINE [Suspect]
     Route: 048
     Dates: start: 20050407, end: 20050614

REACTIONS (2)
  - FALL [None]
  - GAIT DISTURBANCE [None]
